FAERS Safety Report 11269712 (Version 2)
Quarter: 2015Q3

REPORT INFORMATION
  Report Type: Report from Study
  Country: DE (occurrence: DE)
  Receive Date: 20150714
  Receipt Date: 20150722
  Transmission Date: 20151125
  Serious: Yes (Hospitalization, Other)
  Sender: FDA-Public Use
  Company Number: DE-ASTRAZENECA-2015SE66077

PATIENT
  Age: 29725 Day
  Sex: Female

DRUGS (14)
  1. ACETYLSALICYLIC ACID [Suspect]
     Active Substance: ASPIRIN
     Indication: THROMBOSIS PROPHYLAXIS
     Dosage: 100 MG DAILY, (NON AZ PRODUCT)
     Route: 048
     Dates: start: 20150212, end: 20150328
  2. SIMVASTATIN. [Concomitant]
     Active Substance: SIMVASTATIN
     Dates: start: 20150517
  3. FEBUXOSTAT. [Concomitant]
     Active Substance: FEBUXOSTAT
  4. TICAGRELOR [Suspect]
     Active Substance: TICAGRELOR
     Indication: THROMBOSIS PROPHYLAXIS
     Route: 048
     Dates: start: 20150212, end: 20150527
  5. VALSARTAN. [Concomitant]
     Active Substance: VALSARTAN
     Dates: start: 20150516
  6. MADOPAR T [Concomitant]
  7. GLYCIN-SALFAT-KOMPLEX [Concomitant]
  8. TORASEMID [Concomitant]
     Active Substance: TORSEMIDE
  9. METOPROLOL SUCCINAT [Concomitant]
  10. RAMIPRIL. [Concomitant]
     Active Substance: RAMIPRIL
  11. FORMOTEROL FUMARATE DIHYDRATE [Concomitant]
     Active Substance: FORMOTEROL FUMARATE DIHYDRATE
     Dosage: 100/6
  12. MOXONIDIN [Concomitant]
     Active Substance: MOXONIDINE
  13. PANTOPRAZOLE SODIUM. [Concomitant]
     Active Substance: PANTOPRAZOLE SODIUM
  14. SPIRONOLACTON [Concomitant]
     Active Substance: SPIRONOLACTONE

REACTIONS (3)
  - Accidental overdose [Unknown]
  - Atrial flutter [Recovered/Resolved]
  - Acute kidney injury [Recovered/Resolved]

NARRATIVE: CASE EVENT DATE: 20150521
